FAERS Safety Report 6290369-8 (Version None)
Quarter: 2009Q3

REPORT INFORMATION
  Report Type: 
  Country: None (occurrence: None)
  Receive Date: 20090730
  Receipt Date: 20090316
  Transmission Date: 20100115
  Serious: No
  Sender: FDA-Public Use
  Company Number: US-BRISTOL-MYERS SQUIBB COMPANY-14545412

PATIENT
  Age: 69 Year
  Sex: Female
  Weight: 91 kg

DRUGS (9)
  1. COUMADIN [Suspect]
     Indication: BLOOD DISORDER
  2. SYNTHROID [Concomitant]
  3. TEGRETOL [Concomitant]
  4. PROZAC [Concomitant]
  5. FISH OIL [Concomitant]
  6. MULTI-VITAMIN [Concomitant]
  7. CALTRATE [Concomitant]
  8. LISINOPRIL [Concomitant]
  9. TYLENOL (CAPLET) [Concomitant]

REACTIONS (1)
  - INTERNATIONAL NORMALISED RATIO FLUCTUATION [None]
